FAERS Safety Report 6474269-6 (Version None)
Quarter: 2009Q4

REPORT INFORMATION
  Report Type: 
  Country: None (occurrence: None)
  Receive Date: 20091204
  Receipt Date: 20091126
  Transmission Date: 20100525
  Serious: Yes (Hospitalization)
  Sender: FDA-Public Use
  Company Number: PHHO2009GB14709

PATIENT
  Sex: Male
  Weight: 109.6 kg

DRUGS (3)
  1. STI571/CGP57148B T35717+CAPS [Suspect]
     Indication: GASTROINTESTINAL STROMAL TUMOUR
     Dosage: 400 MG, UNK
     Route: 048
     Dates: start: 20090127, end: 20091112
  2. DIOVAN HCT [Concomitant]
  3. DIAZEPAM [Concomitant]

REACTIONS (1)
  - CELLULITIS [None]
